FAERS Safety Report 10340012 (Version 4)
Quarter: 2014Q4

REPORT INFORMATION
  Report Type: Report from Study
  Country: PT (occurrence: PT)
  Receive Date: 20140724
  Receipt Date: 20141027
  Transmission Date: 20150528
  Serious: Yes (Other)
  Sender: FDA-Public Use
  Company Number: PT-ASTELLAS-2014US008677

PATIENT
  Age: 59 Year
  Sex: Male

DRUGS (2)
  1. ERLOTINIB [Suspect]
     Active Substance: ERLOTINIB
     Route: 048
     Dates: start: 20131211, end: 20140819
  2. ERLOTINIB [Suspect]
     Active Substance: ERLOTINIB
     Indication: SQUAMOUS CELL CARCINOMA
     Route: 048
     Dates: start: 20130814

REACTIONS (8)
  - Disease progression [Unknown]
  - Inflammation [Unknown]
  - Respiratory failure [Unknown]
  - General physical health deterioration [Unknown]
  - Rash [Recovered/Resolved]
  - Musculoskeletal pain [Unknown]
  - Skin infection [Recovered/Resolved]
  - Rash generalised [Unknown]

NARRATIVE: CASE EVENT DATE: 20131203
